FAERS Safety Report 21333115 (Version 1)
Quarter: 2022Q3

REPORT INFORMATION
  Report Type: Spontaneous
  Country: US (occurrence: None)
  Receive Date: 20220913
  Receipt Date: 20220913
  Transmission Date: 20221027
  Serious: No
  Sender: FDA-Public Use
  Company Number: None

PATIENT
  Age: 48 Year
  Sex: Female
  Weight: 68.04 kg

DRUGS (4)
  1. VTAMA [Suspect]
     Active Substance: TAPINAROF
  2. MIRTAZAPINE [Concomitant]
     Active Substance: MIRTAZAPINE
  3. ESCITALOPRAM [Concomitant]
     Active Substance: ESCITALOPRAM OXALATE
  4. CLONAZEPAM [Concomitant]
     Active Substance: CLONAZEPAM

REACTIONS (5)
  - Vomiting [None]
  - Influenza like illness [None]
  - Drug ineffective [None]
  - Depression [None]
  - Mood altered [None]

NARRATIVE: CASE EVENT DATE: 20220830
